FAERS Safety Report 7897788-4 (Version None)
Quarter: 2011Q4

REPORT INFORMATION
  Report Type: 
  Country: None (occurrence: None)
  Receive Date: 20111107
  Receipt Date: 20111027
  Transmission Date: 20120403
  Serious: Yes (Other)
  Sender: FDA-Public Use
  Company Number: FR-ROCHE-1007789

PATIENT
  Sex: Male

DRUGS (8)
  1. VALACYCLOVIR HYDROCHLORIDE [Concomitant]
     Route: 002
     Dates: start: 20110914
  2. BACTRIM [Concomitant]
     Dosage: 400 MG, 80 MG
     Route: 002
     Dates: start: 20110914
  3. PREVISCAN [Concomitant]
     Dates: start: 20050101
  4. MABTHERA [Suspect]
     Indication: CHRONIC LYMPHOCYTIC LEUKAEMIA
     Route: 041
     Dates: start: 20110713
  5. SPECIAFOLDINE [Concomitant]
     Dates: start: 20110914
  6. PANTOPRAZOLE [Concomitant]
     Dates: start: 20050101
  7. FLUDARABINE PHOSPHATE [Suspect]
     Indication: CHRONIC LYMPHOCYTIC LEUKAEMIA
     Route: 065
     Dates: start: 20100914, end: 20101209
  8. CYCLOPHOSPHAMIDE [Suspect]
     Indication: CHRONIC LYMPHOCYTIC LEUKAEMIA
     Route: 065
     Dates: start: 20100904, end: 20101209

REACTIONS (1)
  - MYELODYSPLASTIC SYNDROME [None]
